FAERS Safety Report 21920603 (Version 6)
Quarter: 2024Q1

REPORT INFORMATION
  Report Type: Spontaneous
  Country: US (occurrence: US)
  Receive Date: 20230127
  Receipt Date: 20240124
  Transmission Date: 20240409
  Serious: Yes (Other)
  Sender: FDA-Public Use
  Company Number: US-PFIZER INC-PV202300016630

PATIENT
  Age: 81 Year
  Sex: Female

DRUGS (1)
  1. XELJANZ [Suspect]
     Active Substance: TOFACITINIB CITRATE
     Dosage: UNK (FOR ABOUT 3 YEARS)
     Route: 048

REACTIONS (3)
  - Skin cancer [Unknown]
  - Macular degeneration [Unknown]
  - Gout [Not Recovered/Not Resolved]
